FAERS Safety Report 6160009-7 (Version None)
Quarter: 2009Q2

REPORT INFORMATION
  Report Type: 
  Country: None (occurrence: None)
  Receive Date: 20090416
  Receipt Date: 20090408
  Transmission Date: 20091009
  Serious: Yes (Other)
  Sender: FDA-Public Use
  Company Number: 09US000690

PATIENT
  Age: 21 Year
  Sex: Female
  Weight: 79.4 kg

DRUGS (3)
  1. IBUPROFEN [Suspect]
     Indication: DRUG USE FOR UNKNOWN INDICATION
     Dosage: 5000 MG, SINGLE, ORAL
     Route: 048
     Dates: start: 20090408, end: 20090408
  2. MENSTRUAL CRAMP TABLET () [Suspect]
     Indication: DRUG USE FOR UNKNOWN INDICATION
     Dosage: 10 DF, SINGLE, ORAL
     Route: 048
     Dates: start: 20090408, end: 20090408
  3. SPRINTEC (ETHINYLESTRADIOL, NORGESTIMATE) [Concomitant]

REACTIONS (1)
  - INTENTIONAL OVERDOSE [None]
